FAERS Safety Report 14436384 (Version 1)
Quarter: 2018Q1

REPORT INFORMATION
  Report Type: Spontaneous
  Country: US (occurrence: US)
  Receive Date: 20180125
  Receipt Date: 20180125
  Transmission Date: 20180509
  Serious: No
  Sender: FDA-Public Use
  Company Number: US-UNITED THERAPEUTICS-UNT-2017-010804

PATIENT
  Age: 49 Year
  Sex: Female
  Weight: 71.66 kg

DRUGS (4)
  1. ADCIRCA [Concomitant]
     Active Substance: TADALAFIL
     Indication: PRODUCT USED FOR UNKNOWN INDICATION
  2. REMODULIN [Suspect]
     Active Substance: TREPROSTINIL
     Indication: PULMONARY HYPERTENSION
     Dosage: 0.074 ?G/KG, CONTINUING
     Route: 058
     Dates: start: 20160219
  3. REMODULIN [Suspect]
     Active Substance: TREPROSTINIL
     Dosage: 0.0655 ?G/KG, CONTINUING
     Route: 058
  4. LETAIRIS [Concomitant]
     Active Substance: AMBRISENTAN
     Indication: PRODUCT USED FOR UNKNOWN INDICATION

REACTIONS (5)
  - Malaise [Unknown]
  - Infusion site pruritus [Unknown]
  - Device dislocation [Unknown]
  - Palpitations [Unknown]
  - Vomiting [Unknown]

NARRATIVE: CASE EVENT DATE: 20170716
